FAERS Safety Report 8429944-0 (Version None)
Quarter: 2012Q2

REPORT INFORMATION
  Report Type: 
  Country: None (occurrence: None)
  Receive Date: 20120612
  Receipt Date: 20120604
  Transmission Date: 20120825
  Serious: Yes (Hospitalization)
  Sender: FDA-Public Use
  Company Number: US-AMGEN-USASP2012034842

PATIENT
  Age: 62 Year
  Sex: Female

DRUGS (3)
  1. ENBREL [Suspect]
     Indication: PSORIASIS
     Dosage: 50 MG, QWK
     Dates: start: 20060101, end: 20120518
  2. TREXALL [Concomitant]
     Dosage: 8 MG, UNK
     Dates: start: 20060101
  3. ENBREL [Suspect]
     Indication: PSORIATIC ARTHROPATHY

REACTIONS (4)
  - PSORIATIC ARTHROPATHY [None]
  - PSORIASIS [None]
  - ROTATOR CUFF SYNDROME [None]
  - ROAD TRAFFIC ACCIDENT [None]
